FAERS Safety Report 12460322 (Version 3)
Quarter: 2016Q3

REPORT INFORMATION
  Report Type: Report from Study
  Country: FR (occurrence: FR)
  Receive Date: 20160613
  Receipt Date: 20160812
  Transmission Date: 20161109
  Serious: Yes (Death, Life-Threatening, Hospitalization, Disabling, Other)
  Sender: FDA-Public Use
  Company Number: FR-ABBVIE-16P-056-1649506-00

PATIENT
  Age: 62 Year
  Sex: Male
  Weight: 65 kg

DRUGS (5)
  1. SIFROL [Concomitant]
     Active Substance: PRAMIPEXOLE
     Indication: RESTLESS LEGS SYNDROME
     Route: 048
  2. EXVIERA [Suspect]
     Active Substance: DASABUVIR
     Indication: CHRONIC HEPATITIS C
     Route: 048
     Dates: start: 20160303, end: 20160515
  3. RIBAVIRIN. [Suspect]
     Active Substance: RIBAVIRIN
     Indication: CHRONIC HEPATITIS C
     Route: 048
     Dates: start: 20160303, end: 20160515
  4. VIEKIRAX [Suspect]
     Active Substance: OMBITASVIR\PARITAPREVIR\RITONAVIR
     Indication: CHRONIC HEPATITIS C
     Route: 048
     Dates: start: 20160303, end: 20160515
  5. FLUDEX [Concomitant]
     Active Substance: INDAPAMIDE
     Indication: HYPERTENSION
     Route: 048

REACTIONS (4)
  - Carotid aneurysm rupture [Fatal]
  - Brain oedema [Fatal]
  - Cerebrovascular accident [Fatal]
  - Epilepsy [Fatal]

NARRATIVE: CASE EVENT DATE: 20160517
